FAERS Safety Report 5586955-0 (Version None)
Quarter: 2008Q1

REPORT INFORMATION
  Report Type: 
  Country: None (occurrence: None)
  Receive Date: 20080110
  Receipt Date: 20080107
  Transmission Date: 20080703
  Serious: Yes (Death, Hospitalization)
  Sender: FDA-Public Use
  Company Number: US-ASTRAZENECA-2008UW00441

PATIENT
  Age: 885 Month
  Sex: Female
  Weight: 62 kg

DRUGS (2)
  1. ARIMIDEX [Suspect]
     Indication: BREAST CANCER FEMALE
     Route: 048
     Dates: end: 20061217
  2. FASLODEX [Suspect]
     Indication: BREAST CANCER FEMALE
     Route: 030
     Dates: end: 20071207

REACTIONS (1)
  - DEATH [None]
